FAERS Safety Report 18049358 (Version 1)
Quarter: 2020Q3

REPORT INFORMATION
  Report Type: Spontaneous
  Country: US (occurrence: US)
  Receive Date: 20200721
  Receipt Date: 20200721
  Transmission Date: 20201103
  Serious: No
  Sender: FDA-Public Use
  Company Number: None

PATIENT
  Age: 59 Year
  Sex: Female
  Weight: 42.5 kg

DRUGS (1)
  1. TOPOTECAN [Suspect]
     Active Substance: TOPOTECAN HYDROCHLORIDE
     Dates: end: 20200710

REACTIONS (4)
  - Leukopenia [None]
  - Neutropenia [None]
  - Anaemia [None]
  - Lymphopenia [None]

NARRATIVE: CASE EVENT DATE: 20200713
